FAERS Safety Report 21537024 (Version 3)
Quarter: 2022Q4

REPORT INFORMATION
  Report Type: Spontaneous
  Country: US (occurrence: US)
  Receive Date: 20221101
  Receipt Date: 20221121
  Transmission Date: 20230112
  Serious: No
  Sender: FDA-Public Use
  Company Number: US-PFIZER INC-202201268080

PATIENT
  Age: 79 Year
  Sex: Female
  Weight: 62.585 kg

DRUGS (4)
  1. PAXLOVID [Suspect]
     Active Substance: NIRMATRELVIR\RITONAVIR
     Indication: COVID-19 treatment
     Dosage: 150 MG: 100MG DOSE, COMPLETE THE TEN DOSES
     Dates: start: 20221026, end: 20221031
  2. VITAMIN D3 [Concomitant]
     Active Substance: CHOLECALCIFEROL
     Dosage: 500 IU, 1X/DAY
  3. COPPER SULFATE/ZINC SULFATE [Concomitant]
     Dosage: 1 DF, 3X PER WEEK
     Dates: start: 2017
  4. LUTEIN ZEAXANTHIN [Concomitant]
     Dosage: 1 DF, 1X/DAY
     Dates: start: 2012

REACTIONS (7)
  - Polyuria [Recovered/Resolved]
  - Pollakiuria [Recovered/Resolved]
  - Micturition urgency [Recovered/Resolved]
  - Bladder irritation [Recovered/Resolved]
  - Chromaturia [Recovered/Resolved]
  - Oral lichen planus [Recovering/Resolving]
  - Condition aggravated [Recovering/Resolving]

NARRATIVE: CASE EVENT DATE: 20220101
